FAERS Safety Report 14854450 (Version 1)
Quarter: 2018Q2

REPORT INFORMATION
  Report Type: Spontaneous
  Country: US (occurrence: US)
  Receive Date: 20180420
  Receipt Date: 20180420
  Transmission Date: 20180711
  Serious: No
  Sender: FDA-Public Use
  Company Number: None

PATIENT
  Age: 47 Year
  Sex: Female

DRUGS (1)
  1. SALONPAS-HOT CAPSICUM [Suspect]
     Active Substance: CAPSICUM

REACTIONS (3)
  - Application site vesicles [None]
  - Application site irritation [None]
  - Application site warmth [None]

NARRATIVE: CASE EVENT DATE: 20180302
